FAERS Safety Report 17031259 (Version 1)
Quarter: 2019Q4

REPORT INFORMATION
  Report Type: Spontaneous
  Country: CN (occurrence: CN)
  Receive Date: 20191114
  Receipt Date: 20191114
  Transmission Date: 20200122
  Serious: Yes (Other)
  Sender: FDA-Public Use
  Company Number: CN-BAXTER-2019BAX022595

PATIENT
  Age: 21 Year
  Sex: Male
  Weight: 75 kg

DRUGS (2)
  1. 20% MANNITOL INJECTION [Suspect]
     Active Substance: MANNITOL
     Indication: INTRAOCULAR PRESSURE INCREASED
  2. 20% MANNITOL INJECTION [Suspect]
     Active Substance: MANNITOL
     Indication: GLAUCOMATOCYCLITIC CRISES
     Route: 041
     Dates: start: 20191030, end: 20191030

REACTIONS (3)
  - Oropharyngeal discomfort [Recovering/Resolving]
  - Rash pruritic [Recovering/Resolving]
  - Pharyngeal oedema [Recovering/Resolving]

NARRATIVE: CASE EVENT DATE: 20191030
